FAERS Safety Report 4737142-7 (Version None)
Quarter: 2005Q3

REPORT INFORMATION
  Report Type: 
  Country: None (occurrence: None)
  Receive Date: 20050728
  Receipt Date: 20050616
  Transmission Date: 20060218
  Serious: Yes (Other)
  Sender: FDA-Public Use
  Company Number: 200515077US

PATIENT
  Age: 38 Year
  Sex: Male

DRUGS (2)
  1. KETEK [Suspect]
     Indication: SINUSITIS
     Dosage: QD
  2. KETEK [Suspect]
     Indication: SINUSITIS

REACTIONS (1)
  - HEPATIC ENZYME INCREASED [None]
